FAERS Safety Report 8967931 (Version 1)
Quarter: 2012Q4

REPORT INFORMATION
  Report Type: 
  Country: US (occurrence: US)
  Receive Date: 20121218
  Receipt Date: 20121218
  Transmission Date: 20130627
  Serious: No
  Sender: FDA-Public Use
  Company Number: US-GLAXOSMITHKLINE-A0989379A

PATIENT
  Age: 65 Year
  Sex: Female
  Weight: 63.2 kg

DRUGS (1)
  1. COREG CR [Suspect]
     Route: 065
     Dates: start: 2011

REACTIONS (1)
  - Alopecia [Not Recovered/Not Resolved]
